FAERS Safety Report 8292836 (Version 2)
Quarter: 2014Q3

REPORT INFORMATION
  Report Type: Spontaneous
  Country: US (occurrence: US)
  Receive Date: 20111215
  Receipt Date: 20140709
  Transmission Date: 20150326
  Serious: Yes (Hospitalization)
  Sender: FDA-Public Use
  Company Number: US-GLAXOSMITHKLINE-A0875891A

PATIENT
  Sex: Male

DRUGS (1)
  1. AVANDIA [Suspect]
     Active Substance: ROSIGLITAZONE MALEATE
     Indication: DIABETES MELLITUS
     Route: 048
     Dates: start: 2003, end: 20070523

REACTIONS (10)
  - Cardiac failure congestive [Unknown]
  - Coronary artery disease [Unknown]
  - Sick sinus syndrome [Unknown]
  - Peripheral vascular disorder [Unknown]
  - Cardiac disorder [Unknown]
  - Cerebral ischaemia [Unknown]
  - Atrioventricular block [Not Recovered/Not Resolved]
  - Myocardial infarction [Unknown]
  - Transient ischaemic attack [Unknown]
  - Pulmonary embolism [Unknown]
